FAERS Safety Report 4808496-8 (Version None)
Quarter: 2005Q4

REPORT INFORMATION
  Report Type: 
  Country: None (occurrence: None)
  Receive Date: 20051021
  Receipt Date: 20030604
  Transmission Date: 20060501
  Serious: No
  Sender: FDA-Public Use
  Company Number: DE_030611420

PATIENT
  Sex: Female

DRUGS (2)
  1. ZYPREXA [Suspect]
     Dosage: 10 MG/1 DAY
  2. ZINK (ZINC SULFATE) [Concomitant]

REACTIONS (4)
  - BLOOD AMYLASE INCREASED [None]
  - GRANULOCYTE COUNT INCREASED [None]
  - LYMPHOCYTE COUNT DECREASED [None]
  - SKIN PAPILLOMA [None]
